FAERS Safety Report 21673430 (Version 2)
Quarter: 2022Q4

REPORT INFORMATION
  Report Type: Report from Study
  Country: CA (occurrence: CA)
  Receive Date: 20221202
  Receipt Date: 20221219
  Transmission Date: 20230113
  Serious: Yes (Other)
  Sender: FDA-Public Use
  Company Number: CA-002147023-NVSC2022CA150102

PATIENT
  Age: 34 Year
  Sex: Female

DRUGS (4)
  1. HYRIMOZ [Suspect]
     Active Substance: ADALIMUMAB-ADAZ
     Indication: Crohn^s disease
     Dosage: 40 MG
     Route: 058
     Dates: start: 20220621
  2. HYRIMOZ [Suspect]
     Active Substance: ADALIMUMAB-ADAZ
     Dosage: 80 MG
     Route: 058
  3. HYRIMOZ [Suspect]
     Active Substance: ADALIMUMAB-ADAZ
     Dosage: 40 MG
     Route: 058
     Dates: start: 20220817
  4. HYRIMOZ [Suspect]
     Active Substance: ADALIMUMAB-ADAZ
     Dosage: 80 MG, QW
     Route: 058

REACTIONS (20)
  - Haematochezia [Unknown]
  - Diarrhoea [Unknown]
  - Flatulence [Unknown]
  - Eructation [Unknown]
  - Retching [Unknown]
  - Abdominal distension [Unknown]
  - Joint stiffness [Unknown]
  - Mouth ulceration [Unknown]
  - Anal fissure [Unknown]
  - Calcium deficiency [Unknown]
  - Tooth loss [Unknown]
  - Tooth injury [Unknown]
  - Dyspepsia [Unknown]
  - Abdominal pain [Unknown]
  - Anxiety [Unknown]
  - Vomiting [Unknown]
  - Psoriasis [Unknown]
  - Injection site pain [Unknown]
  - Product administration interrupted [Unknown]
  - Product use issue [Unknown]

NARRATIVE: CASE EVENT DATE: 20220705
